FAERS Safety Report 7883527-X (Version None)
Quarter: 2011Q4

REPORT INFORMATION
  Report Type: 
  Country: None (occurrence: None)
  Receive Date: 20111102
  Receipt Date: 20111027
  Transmission Date: 20120403
  Serious: Yes (Death, Other)
  Sender: FDA-Public Use
  Company Number: US-CELGENEUS-163-21880-11101452

PATIENT
  Sex: Female

DRUGS (35)
  1. PLAVIX [Concomitant]
     Dosage: 75 MILLIGRAM
     Route: 048
     Dates: start: 20110414
  2. PREMARIN [Concomitant]
     Dosage: .9 MILLIGRAM
     Route: 048
     Dates: start: 20110414
  3. PROMETHAZINE [Concomitant]
     Indication: NAUSEA
     Dosage: 1/2-1 TAB
     Route: 048
     Dates: start: 20110608
  4. RESTORIL [Concomitant]
     Dosage: 15 MILLIGRAM
     Route: 048
     Dates: start: 20110922
  5. ATARAX [Concomitant]
     Dosage: 600 MILLIGRAM
     Route: 048
     Dates: start: 20110922
  6. CARVEDILOL [Concomitant]
     Indication: HYPERTENSION
     Dosage: 25 MILLIGRAM
     Route: 048
     Dates: start: 20110414
  7. COMBIVENT [Concomitant]
     Dosage: 1- 2 PUFFS
     Route: 055
     Dates: start: 20110711
  8. COUMADIN [Concomitant]
     Dosage: 5 MILLIGRAM
     Route: 048
     Dates: start: 20110622
  9. DEXAMETHASONE [Concomitant]
     Dosage: 40 MILLIGRAM
     Route: 048
     Dates: start: 20110519
  10. IRON [Concomitant]
     Dosage: 36 MILLIGRAM
     Route: 048
     Dates: start: 20110414
  11. ZYLOPRIM [Concomitant]
     Dosage: 300 MILLIGRAM
     Route: 048
     Dates: start: 20110622
  12. DIVALPROEX SODIUM [Concomitant]
     Dosage: 1000 MILLIGRAM
     Route: 048
     Dates: start: 20110414
  13. PHENERGAN HCL [Concomitant]
     Indication: NAUSEA
     Route: 065
     Dates: start: 20110922
  14. POTASSIUM CHLORIDE [Concomitant]
     Dosage: 20 MILLIEQUIVALENTS
     Route: 048
     Dates: start: 20110620
  15. TYLENOL-500 [Concomitant]
  16. DEPAKOTE [Concomitant]
     Dosage: 1500 MILLIGRAM
     Route: 048
     Dates: start: 20110620, end: 20110622
  17. MEDROL [Concomitant]
     Route: 065
     Dates: start: 20110801
  18. XANAX [Concomitant]
  19. ALLOPURINOL [Concomitant]
     Dosage: 300 MILLIGRAM
     Route: 048
     Dates: start: 20110519
  20. LOSARTAN-HYDROCHLORIDE [Concomitant]
     Route: 048
     Dates: start: 20110414
  21. ARANESP [Concomitant]
     Route: 065
     Dates: start: 20110922
  22. CALCIUM + D3 [Concomitant]
     Dosage: 1 TABLET
     Route: 048
     Dates: start: 20110414
  23. EMLA [Concomitant]
     Route: 061
     Dates: start: 20110613
  24. LASIX [Concomitant]
     Dosage: 20 MILLIGRAM
     Route: 048
     Dates: start: 20110620
  25. SIMVASTATIN [Concomitant]
     Dosage: 40 MILLIGRAM
     Route: 048
     Dates: start: 20110414
  26. TYLENOL-500 [Concomitant]
     Indication: PAIN
     Route: 048
     Dates: start: 20110922
  27. XANAX [Concomitant]
     Indication: ANXIETY
     Route: 048
     Dates: start: 20110620
  28. COUMADIN [Concomitant]
     Dosage: 10 MILLIGRAM
     Route: 048
     Dates: start: 20110620, end: 20110622
  29. REVLIMID [Suspect]
     Indication: MULTIPLE MYELOMA
     Dosage: 25 MILLIGRAM
     Route: 048
     Dates: start: 20110525, end: 20110616
  30. PRILOSEC [Concomitant]
     Dosage: 20 MILLIGRAM
     Route: 048
     Dates: start: 20110608
  31. FISH OIL [Concomitant]
     Dosage: 2000 MILLIGRAM
     Route: 048
     Dates: start: 20110414
  32. ACETAMINOPHEN AND HYDROCODONE BITARTRATE [Concomitant]
     Indication: PAIN
     Route: 048
     Dates: start: 20110922
  33. LOVENOX [Concomitant]
     Route: 058
     Dates: start: 20110620
  34. INDERAL [Concomitant]
     Dosage: 1 CAPSULE
     Route: 048
     Dates: start: 20110922
  35. KEFLEX [Concomitant]
     Dosage: 1500 MILLIGRAM
     Route: 048
     Dates: start: 20110725

REACTIONS (2)
  - NEOPLASM MALIGNANT [None]
  - CARDIAC ARREST [None]
